FAERS Safety Report 8986174 (Version 1)
Quarter: 2012Q4

REPORT INFORMATION
  Report Type: Spontaneous
  Country: US (occurrence: None)
  Receive Date: 20121026
  Receipt Date: 20121026
  Transmission Date: 20130627
  Serious: No
  Sender: FDA-Public Use
  Company Number: 2012-00172

PATIENT
  Age: 63 Year
  Sex: Female

DRUGS (2)
  1. ZICAM COLD REMEDY NASAL GEL [Suspect]
     Indication: COLD SYMPTOMS
     Dates: start: 2003, end: 2005
  2. ZICAM COLD REMEDY NASAL SWABS [Suspect]
     Indication: COLD SYMPTOMS

REACTIONS (1)
  - Anosmia [None]
